FAERS Safety Report 9160127 (Version 2)
Quarter: 2013Q2

REPORT INFORMATION
  Report Type: Report from Study
  Country: JP (occurrence: JP)
  Receive Date: 20130313
  Receipt Date: 20130611
  Transmission Date: 20140414
  Serious: Yes (Hospitalization, Other)
  Sender: FDA-Public Use
  Company Number: PHHY2013JP022942

PATIENT
  Age: 42 Year
  Sex: Female

DRUGS (9)
  1. FTY 720 [Suspect]
     Indication: MULTIPLE SCLEROSIS
     Dosage: 0.5 MG, QD
     Route: 048
     Dates: start: 20120802
  2. METHYLPREDNISOLONE [Concomitant]
     Dosage: 1 G, UNK
     Route: 051
     Dates: start: 20120804, end: 20120804
  3. PREDNISOLONE [Concomitant]
     Dosage: 100 MG, UNK
     Route: 048
     Dates: start: 20120805, end: 20120806
  4. UBRETID [Concomitant]
     Dosage: 5 MG, UNK
     Route: 048
     Dates: start: 20130127
  5. LIORESAL [Concomitant]
     Dosage: 15 MG, UNK
     Route: 048
  6. ONEALFA [Concomitant]
     Dosage: 1 UG, UNK
  7. SYMMETREL [Concomitant]
     Dosage: 200 MG, UNK
  8. BUP-4 [Concomitant]
     Dosage: 30 MG, UNK
     Route: 048
  9. ALLEGRA [Concomitant]
     Dosage: 120 MG, UNK
     Route: 048

REACTIONS (7)
  - Renal failure [Recovered/Resolved]
  - Convulsion [Recovered/Resolved]
  - Multiple sclerosis [Recovered/Resolved]
  - Blood lactate dehydrogenase increased [Recovered/Resolved]
  - Bundle branch block right [Recovered/Resolved]
  - Hypertension [Recovered/Resolved]
  - Aspartate aminotransferase increased [Recovered/Resolved]
